FAERS Safety Report 9166743 (Version 1)
Quarter: 2013Q1

REPORT INFORMATION
  Report Type: Spontaneous
  Country: US (occurrence: US)
  Receive Date: 20130315
  Receipt Date: 20130315
  Transmission Date: 20140127
  Serious: No
  Sender: FDA-Public Use
  Company Number: US-ASTRAZENECA-2013SE14072

PATIENT
  Age: 63 Year
  Sex: Male

DRUGS (1)
  1. SEROQUEL XR [Suspect]
     Indication: PARKINSON^S DISEASE
     Route: 048

REACTIONS (2)
  - Ammonia increased [Unknown]
  - Off label use [Unknown]
